FAERS Safety Report 25879414 (Version 1)
Quarter: 2025Q4

REPORT INFORMATION
  Report Type: Spontaneous
  Country: GB (occurrence: GB)
  Receive Date: 20251003
  Receipt Date: 20251003
  Transmission Date: 20260118
  Serious: Yes (Other)
  Sender: VERITY PHARMACEUTICALS INC.
  Company Number: GB-VER-202500015

PATIENT
  Age: 42 Year
  Sex: Female

DRUGS (1)
  1. TRIPTORELIN PAMOATE [Suspect]
     Active Substance: TRIPTORELIN PAMOATE
     Indication: Product used for unknown indication
     Route: 065
     Dates: start: 20250905, end: 20250905

REACTIONS (3)
  - Swelling face [Recovering/Resolving]
  - Throat tightness [Unknown]
  - Urticaria [Unknown]

NARRATIVE: CASE EVENT DATE: 20250912
